FAERS Safety Report 8586565-7 (Version None)
Quarter: 2012Q3

REPORT INFORMATION
  Report Type: 
  Country: None (occurrence: None)
  Receive Date: 20120810
  Receipt Date: 20120801
  Transmission Date: 20120928
  Serious: Yes (Hospitalization, Disabling, Other)
  Sender: FDA-Public Use
  Company Number: US-009507513-1112USA02653

PATIENT

DRUGS (7)
  1. LEXAPRO [Concomitant]
     Indication: MENOPAUSE
  2. FOSAMAX [Suspect]
     Indication: OSTEOPOROSIS
     Dosage: 70 MG, UNK
     Route: 048
     Dates: start: 20020101
  3. ALENDRONATE SODIUM [Suspect]
     Indication: OSTEOPOROSIS
     Dosage: 70 MG, UNK
     Route: 048
     Dates: start: 20080102, end: 20100802
  4. VIVELLE-DOT [Concomitant]
     Indication: HORMONE THERAPY
  5. ESTROGENS (UNSPECIFIED) [Concomitant]
     Indication: HORMONE REPLACEMENT THERAPY
     Dosage: UNK
     Dates: start: 19700101
  6. AXERT [Concomitant]
     Indication: MIGRAINE
  7. ZOMIG [Concomitant]
     Indication: MIGRAINE WITH AURA
     Dosage: 5 MG, Q4H

REACTIONS (29)
  - PAIN IN EXTREMITY [None]
  - NAUSEA [None]
  - SALPINGO-OOPHORECTOMY BILATERAL [None]
  - HAEMANGIOMA [None]
  - RENAL IMPAIRMENT [None]
  - ADVERSE EVENT [None]
  - UTERINE DILATION AND CURETTAGE [None]
  - OSTEOARTHRITIS [None]
  - DIARRHOEA [None]
  - HYSTERECTOMY [None]
  - MENISCUS LESION [None]
  - FEMUR FRACTURE [None]
  - SLEEP DISORDER [None]
  - VOMITING [None]
  - TONSILLECTOMY [None]
  - ANAEMIA POSTOPERATIVE [None]
  - ARTHRITIS [None]
  - HYPERLIPIDAEMIA [None]
  - ROAD TRAFFIC ACCIDENT [None]
  - ANXIETY [None]
  - GRANULOMA [None]
  - BUNDLE BRANCH BLOCK LEFT [None]
  - DIVERTICULUM [None]
  - CONSTIPATION [None]
  - LOW TURNOVER OSTEOPATHY [None]
  - MOOD ALTERED [None]
  - DEPRESSION [None]
  - LEUKOCYTOSIS [None]
  - SYNOVIAL CYST [None]
